FAERS Safety Report 8231526-0 (Version None)
Quarter: 2012Q1

REPORT INFORMATION
  Report Type: 
  Country: None (occurrence: None)
  Receive Date: 20120323
  Receipt Date: 20120316
  Transmission Date: 20120608
  Serious: Yes (Other)
  Sender: FDA-Public Use
  Company Number: PHHY2012FR018936

PATIENT
  Age: 84 Year
  Sex: Male
  Weight: 82 kg

DRUGS (8)
  1. SPIRIVA [Concomitant]
     Indication: CHRONIC OBSTRUCTIVE PULMONARY DISEASE
     Dosage: DF, UNK, DAILY
  2. METFORMIN HCL [Concomitant]
     Indication: TYPE 2 DIABETES MELLITUS
     Dosage: 2 DF, UNK, DAILY
  3. RILMENIDINE [Concomitant]
     Indication: HYPERTENSION
     Dosage: 1 MG, UNK, DAILY
  4. OSLIF BREEZHALER [Suspect]
     Indication: CHRONIC OBSTRUCTIVE PULMONARY DISEASE
     Dosage: 1 DF, QD
     Dates: start: 20120125, end: 20120208
  5. ACETAMINOPHEN [Suspect]
     Dosage: 1000 MG, TID
     Route: 048
  6. ALDALIX [Concomitant]
     Indication: HYPERTENSION
     Dosage: 1 DF, UNK
  7. ALLOPURINOL [Concomitant]
     Dosage: 200 MG, UNK
  8. ATARAX [Concomitant]
     Indication: INSOMNIA
     Dosage: 25 MG, UNK

REACTIONS (6)
  - STOMATITIS [None]
  - PAIN [None]
  - BRONCHOSPASM [None]
  - DYSPNOEA [None]
  - UPPER RESPIRATORY TRACT INFLAMMATION [None]
  - GLOSSITIS [None]
